FAERS Safety Report 18022265 (Version 1)
Quarter: 2020Q3

REPORT INFORMATION
  Report Type: Spontaneous
  Country: US (occurrence: US)
  Receive Date: 20200714
  Receipt Date: 20200714
  Transmission Date: 20201103
  Serious: Yes (Death)
  Sender: FDA-Public Use
  Company Number: US-PURDUE-USA-2020-0156580

PATIENT
  Age: 43 Year
  Sex: Female

DRUGS (1)
  1. MORPHINE SULFATE (SIMILAR TO NDA 19?516) [Suspect]
     Active Substance: MORPHINE SULFATE
     Indication: PRODUCT USED FOR UNKNOWN INDICATION
     Route: 048

REACTIONS (5)
  - Asthma [Fatal]
  - Hypertension [Fatal]
  - Toxicity to various agents [Fatal]
  - Pneumonia [Fatal]
  - Type 2 diabetes mellitus [Fatal]

NARRATIVE: CASE EVENT DATE: 20130506
